FAERS Safety Report 6944835-X (Version None)
Quarter: 2010Q3

REPORT INFORMATION
  Report Type: 
  Country: None (occurrence: None)
  Receive Date: 20100827
  Receipt Date: 20100818
  Transmission Date: 20110219
  Serious: Yes (Hospitalization)
  Sender: FDA-Public Use
  Company Number: US-GENZYME-RENA-1000801

PATIENT
  Age: 65 Year
  Sex: Female

DRUGS (3)
  1. RENAGEL [Suspect]
     Indication: HYPERPHOSPHATAEMIA
     Dosage: UNK
     Route: 048
  2. RENAGEL [Suspect]
     Dosage: UNK
     Route: 048
  3. RENVELA [Suspect]
     Indication: HYPERPHOSPHATAEMIA
     Dosage: 13.6 G, QD
     Route: 048
     Dates: start: 20100803, end: 20100805

REACTIONS (2)
  - HOSPITALISATION [None]
  - PRURITUS GENERALISED [None]
